FAERS Safety Report 21972801 (Version 2)
Quarter: 2023Q2

REPORT INFORMATION
  Report Type: Spontaneous
  Country: PL (occurrence: PL)
  Receive Date: 20230209
  Receipt Date: 20230504
  Transmission Date: 20230721
  Serious: Yes (Death, Other)
  Sender: FDA-Public Use
  Company Number: PL-BRACCO-2023PL00443

PATIENT
  Age: 48 Year
  Sex: Male

DRUGS (1)
  1. PROHANCE [Suspect]
     Active Substance: GADOTERIDOL
     Indication: Magnetic resonance imaging pancreas
     Dosage: 10 ML, SINGLE
     Route: 042
     Dates: start: 20230124, end: 20230124

REACTIONS (2)
  - Cardiac arrest [Fatal]
  - Dyspnoea [Fatal]

NARRATIVE: CASE EVENT DATE: 20230124
